FAERS Safety Report 9604067 (Version 1)
Quarter: 2013Q4

REPORT INFORMATION
  Report Type: Other
  Country: GB (occurrence: GB)
  Receive Date: 20131008
  Receipt Date: 20131008
  Transmission Date: 20140711
  Serious: Yes (Other)
  Sender: FDA-Public Use
  Company Number: GB-SUN PHARMACEUTICAL INDUSTRIES LTD-2013SUN04782

PATIENT
  Age: 21 Year
  Sex: Female

DRUGS (11)
  1. VENLAFAXINE HYDROCHLORIDE 37.5MG TABLET [Suspect]
     Indication: PRODUCT USED FOR UNKNOWN INDICATION
     Dosage: 150 MG, UNK
     Route: 048
     Dates: start: 20130202, end: 20130712
  2. CLOZARIL [Suspect]
     Indication: SCHIZOPHRENIA
     Dosage: UNK
     Route: 048
     Dates: start: 20130227
  3. CLOZARIL [Suspect]
     Dosage: 37.5 MG, UNK
     Route: 048
     Dates: start: 20130305, end: 20130312
  4. CLOZARIL [Suspect]
     Dosage: 300 MG, UNK
     Route: 048
  5. BECONASE [Concomitant]
  6. CLONAZEPAM [Concomitant]
     Dosage: 1 MG, OD
  7. COLPERMIN [Concomitant]
     Dosage: 2 DF, BID
  8. IBUPROFEN [Concomitant]
     Indication: PAIN
     Dosage: 400 MG, UNK
     Route: 048
  9. OLANZAPIN [Concomitant]
     Dosage: 5 MG, UNK
     Route: 048
  10. OMEPRAZOLE [Concomitant]
     Dosage: 20 MG, OD
  11. SERTRALINE [Concomitant]
     Dosage: 200 MG, OD

REACTIONS (5)
  - Platelet count increased [Unknown]
  - Feeling of body temperature change [Unknown]
  - Chest discomfort [Unknown]
  - Accidental exposure to product [Unknown]
  - Electrocardiogram QT prolonged [Recovered/Resolved]
